FAERS Safety Report 23665006 (Version 1)
Quarter: 2024Q1

REPORT INFORMATION
  Report Type: Report from Study
  Country: US (occurrence: US)
  Receive Date: 20240322
  Receipt Date: 20240322
  Transmission Date: 20240410
  Serious: Yes (Hospitalization)
  Sender: FDA-Public Use
  Company Number: US-GLAXOSMITHKLINE-US2023AMR103880

PATIENT

DRUGS (22)
  1. BELIMUMAB [Suspect]
     Active Substance: BELIMUMAB
     Indication: Lupus nephritis
     Dosage: 525 MG, MO
     Route: 064
     Dates: start: 20220301, end: 20230410
  2. BELIMUMAB [Suspect]
     Active Substance: BELIMUMAB
     Indication: Systemic lupus erythematosus
  3. AZATHIOPRINE [Concomitant]
     Active Substance: AZATHIOPRINE
     Indication: Systemic lupus erythematosus
     Dosage: 2 DF, QD
     Route: 064
     Dates: start: 20210415, end: 20230616
  4. AZATHIOPRINE [Concomitant]
     Active Substance: AZATHIOPRINE
     Indication: Lupus nephritis
  5. ASPIRIN [Concomitant]
     Active Substance: ASPIRIN
     Indication: Pregnancy
     Dosage: 81 MG, QD
     Route: 064
     Dates: start: 20220930, end: 20230611
  6. CELLCEPT [Concomitant]
     Active Substance: MYCOPHENOLATE MOFETIL
     Indication: Systemic lupus erythematosus
     Dosage: 2 DF, QD
     Route: 064
     Dates: start: 20190701, end: 20210215
  7. CELLCEPT [Concomitant]
     Active Substance: MYCOPHENOLATE MOFETIL
     Indication: Lupus nephritis
  8. CEPHALEXIN [Concomitant]
     Active Substance: CEPHALEXIN
     Indication: Urinary tract infection
     Dosage: 500 MG, QID
     Route: 064
     Dates: start: 20230110, end: 20230116
  9. INFLUENZA VIRUS VACCINE [Concomitant]
     Active Substance: INFLUENZA VIRUS VACCINE
     Indication: Prophylaxis
     Dosage: 1 DF, QD
     Route: 064
     Dates: start: 20221223, end: 20221223
  10. IMURAN [Concomitant]
     Active Substance: AZATHIOPRINE
     Indication: Systemic lupus erythematosus
     Dosage: 50 MG, 3.5 WK
     Route: 064
     Dates: start: 20210415, end: 20230616
  11. IMURAN [Concomitant]
     Active Substance: AZATHIOPRINE
     Indication: Lupus nephritis
     Dosage: 100 MG, 3.5 WK
     Route: 064
     Dates: start: 20210415, end: 20230616
  12. IRON [Concomitant]
     Active Substance: IRON
     Indication: Anaemia
     Dosage: 325 MG, BID
     Route: 064
     Dates: start: 20230109, end: 20230616
  13. KEPPRA XR [Concomitant]
     Active Substance: LEVETIRACETAM
     Indication: Hippocampal sclerosis
     Dosage: 500 MG, BID
     Route: 064
     Dates: start: 20220930, end: 20230616
  14. MAGNESIUM [Concomitant]
     Active Substance: MAGNESIUM
     Indication: Constipation
     Dosage: 400 MG, 3.5 WK
     Route: 064
     Dates: start: 20220930, end: 20230616
  15. METRONIDAZOLE [Concomitant]
     Active Substance: METRONIDAZOLE
     Indication: Bacterial vaginosis
     Dosage: 500 MG, BID
     Route: 064
     Dates: start: 20221023, end: 20221025
  16. PLAQUENIL [Concomitant]
     Active Substance: HYDROXYCHLOROQUINE SULFATE
     Indication: Systemic lupus erythematosus
     Dosage: 200 MG, BID
     Route: 064
     Dates: start: 20171215, end: 20230616
  17. PLAQUENIL [Concomitant]
     Active Substance: HYDROXYCHLOROQUINE SULFATE
     Indication: Lupus nephritis
  18. SYNTHROID [Concomitant]
     Active Substance: LEVOTHYROXINE SODIUM
     Indication: Hypothyroidism
     Dosage: 115 UG, 1 AS NEEDED
     Route: 064
     Dates: start: 20230213, end: 20230616
  19. SYNTHROID [Concomitant]
     Active Substance: LEVOTHYROXINE SODIUM
     Dosage: 100 UG, QD
     Route: 064
     Dates: start: 20220930, end: 20230212
  20. VITAMIN C [Concomitant]
     Active Substance: ASCORBIC ACID
     Indication: Pregnancy
     Dosage: 1000 IU, QD
     Route: 064
     Dates: start: 20220930, end: 20230616
  21. VITAMIN D3 [Concomitant]
     Active Substance: CHOLECALCIFEROL
     Indication: Vitamin D
     Dosage: 500 UG, QD
     Route: 062
     Dates: start: 20220930, end: 20230616
  22. TETANUS TOXOID, REDUCED DIPHTHERIA TOXOID AND ACELLULAR PERTUSSIS VACC [Concomitant]
     Active Substance: TETANUS TOXOID, REDUCED DIPHTHERIA TOXOID AND ACELLULAR PERTUSSIS VACCINE ADSORBED, TDAP
     Indication: Prophylaxis
     Dosage: UNK, SINGLE
     Route: 064
     Dates: start: 20230416, end: 20230416

REACTIONS (3)
  - Pyrexia [Unknown]
  - Vomiting [Unknown]
  - Foetal exposure during pregnancy [Unknown]

NARRATIVE: CASE EVENT DATE: 20230626
